FAERS Safety Report 10897074 (Version 2)
Quarter: 2015Q2

REPORT INFORMATION
  Report Type: Spontaneous
  Country: US (occurrence: US)
  Receive Date: 20150309
  Receipt Date: 20150424
  Transmission Date: 20150821
  Serious: No
  Sender: FDA-Public Use
  Company Number: US-PFIZER INC-2015077266

PATIENT
  Age: 62 Year
  Sex: Male

DRUGS (12)
  1. CARVEDILOL. [Concomitant]
     Active Substance: CARVEDILOL
     Dosage: 1.5 DF, 2X/DAY(2 MG, 1.5 (TAB)
     Dates: start: 201412
  2. FUROSEMIDE. [Concomitant]
     Active Substance: FUROSEMIDE
     Dosage: 1 DF, ALTERNATE DAY,(20 MG 1 TAB )
     Dates: start: 201411
  3. KLOR-CON M20 [Concomitant]
     Active Substance: POTASSIUM CHLORIDE
     Dosage: 1 DF, ALTERNATE DAY
     Dates: start: 201411
  4. PRADAXA [Concomitant]
     Active Substance: DABIGATRAN ETEXILATE MESYLATE
     Dosage: 1 DF, 2X/DAY, (150 MG 1 CAPSULE)
     Dates: start: 201410
  5. BUSPIRONE [Concomitant]
     Active Substance: BUSPIRONE HYDROCHLORIDE
     Dosage: 1 DF, 3X/DAY, (15 MG 1 TAB )
     Dates: start: 201206
  6. OXYCODONE AND ACETAMINOPHEN [Concomitant]
     Active Substance: ACETAMINOPHEN\OXYCODONE\OXYCODONE HYDROCHLORIDE
     Dosage: 1 DF (7.5/325), 2X/DAY
     Dates: start: 2014
  7. TIKOSYN [Suspect]
     Active Substance: DOFETILIDE
     Indication: ATRIAL FIBRILLATION
     Dosage: 0.5 MG, 2X/DAY
     Dates: start: 20150216
  8. TIKOSYN [Suspect]
     Active Substance: DOFETILIDE
     Indication: ATRIAL FLUTTER
     Dosage: 0.5 MG, 2X/DAY
     Dates: start: 20150216
  9. LEFLUNOMIDE. [Concomitant]
     Active Substance: LEFLUNOMIDE
     Dosage: 1 DF, DAILY, (20 MG 1 TABLET)
     Dates: start: 201106
  10. ALLOPURINOL. [Concomitant]
     Active Substance: ALLOPURINOL
     Dosage: 1 DF, DAILY, (300MG 1 TABLET)
     Dates: start: 2010
  11. LISINOPRIL. [Concomitant]
     Active Substance: LISINOPRIL
     Dosage: 1 DF, DAILY (20 MG 1 TAB )
     Dates: start: 201407
  12. TRAMADOL [Concomitant]
     Active Substance: TRAMADOL
     Dosage: 1 DF, 2X/DAY, (50 MG 1 TAB)
     Dates: start: 2014

REACTIONS (3)
  - Nausea [Not Recovered/Not Resolved]
  - Headache [Not Recovered/Not Resolved]
  - Tachycardia [Recovered/Resolved]

NARRATIVE: CASE EVENT DATE: 20150219
